FAERS Safety Report 6460276-6 (Version None)
Quarter: 2009Q4

REPORT INFORMATION
  Report Type: 
  Country: None (occurrence: None)
  Receive Date: 20091130
  Receipt Date: 20091119
  Transmission Date: 20100525
  Serious: Yes (Other)
  Sender: FDA-Public Use
  Company Number: PHFR2006GB03626

PATIENT
  Age: 46 Year
  Sex: Female

DRUGS (1)
  1. ZOMETA [Suspect]
     Indication: METASTASES TO BONE
     Dosage: UNK, UNK
     Route: 065
     Dates: start: 20050704, end: 20061101

REACTIONS (5)
  - BONE DEBRIDEMENT [None]
  - FACIAL PAIN [None]
  - INFLAMMATION OF WOUND [None]
  - OSTEONECROSIS [None]
  - TOOTH EXTRACTION [None]
